FAERS Safety Report 12602322 (Version 1)
Quarter: 2016Q3

REPORT INFORMATION
  Report Type: Spontaneous
  Country: US (occurrence: US)
  Receive Date: 20160728
  Receipt Date: 20160728
  Transmission Date: 20161109
  Serious: No
  Sender: FDA-Public Use
  Company Number: US-BAUSCH-BL-2016-011114

PATIENT
  Age: 86 Year
  Sex: Female

DRUGS (1)
  1. OPCON-A [Suspect]
     Active Substance: NAPHAZOLINE HYDROCHLORIDE\PHENIRAMINE MALEATE
     Indication: EYE DISORDER
     Dosage: AS NEEDED
     Route: 065
     Dates: start: 20160501, end: 20160501

REACTIONS (4)
  - Eye pain [Not Recovered/Not Resolved]
  - Vision blurred [Not Recovered/Not Resolved]
  - Off label use [Recovered/Resolved]
  - Eye irritation [Not Recovered/Not Resolved]

NARRATIVE: CASE EVENT DATE: 20160502
